FAERS Safety Report 21242511 (Version 1)
Quarter: 2022Q3

REPORT INFORMATION
  Report Type: Spontaneous
  Country: US (occurrence: None)
  Receive Date: 20220822
  Receipt Date: 20220822
  Transmission Date: 20221026
  Serious: Yes (Hospitalization)
  Sender: FDA-Public Use
  Company Number: None

PATIENT
  Age: 31 Year
  Sex: Female
  Weight: 57 kg

DRUGS (4)
  1. SIPONIMOD [Suspect]
     Active Substance: SIPONIMOD
     Indication: Multiple sclerosis
     Dosage: FREQUENCY : DAILY;?
     Route: 048
     Dates: start: 20200317
  2. VITAMIN D [Concomitant]
     Active Substance: VITAMIN D NOS
     Dates: start: 20191120
  3. K2 D3 [Concomitant]
     Dates: start: 20191101
  4. Dim Complex Vitamin C [Concomitant]
     Dates: start: 20201001

REACTIONS (2)
  - Pyrexia [None]
  - Escherichia infection [None]

NARRATIVE: CASE EVENT DATE: 20220730
